FAERS Safety Report 6702847-5 (Version None)
Quarter: 2010Q2

REPORT INFORMATION
  Report Type: 
  Country: None (occurrence: None)
  Receive Date: 20100429
  Receipt Date: 20100429
  Transmission Date: 20101027
  Serious: Yes (Other)
  Sender: FDA-Public Use
  Company Number: None

PATIENT
  Age: 67 Year
  Sex: Female

DRUGS (3)
  1. DEXIMETHISONE [Suspect]
     Indication: MULTIPLE MYELOMA
     Dosage: INFUSION WEEKLY IV
     Route: 042
     Dates: start: 20090508, end: 20090808
  2. VELCADE [Suspect]
  3. CYTOXAN [Suspect]

REACTIONS (4)
  - DRUG TOXICITY [None]
  - NEUROPATHY PERIPHERAL [None]
  - OEDEMA PERIPHERAL [None]
  - PAIN IN EXTREMITY [None]
